FAERS Safety Report 4781372-5 (Version None)
Quarter: 2005Q3

REPORT INFORMATION
  Report Type: 
  Country: None (occurrence: None)
  Receive Date: 20050928
  Receipt Date: 20050920
  Transmission Date: 20060218
  Serious: Yes (Other)
  Sender: FDA-Public Use
  Company Number: PHRM2005FR02528

PATIENT
  Age: 52 Year
  Sex: Female

DRUGS (1)
  1. GLEEVEC [Suspect]
     Indication: CHRONIC MYELOID LEUKAEMIA
     Dosage: 100 MG, QID
     Route: 048
     Dates: start: 20020101

REACTIONS (7)
  - ASTHENIA [None]
  - CATARACT [None]
  - CONDITION AGGRAVATED [None]
  - EYE OEDEMA [None]
  - INTESTINAL POLYP [None]
  - MENORRHAGIA [None]
  - UTERINE LEIOMYOMA [None]
